FAERS Safety Report 6341717-1 (Version None)
Quarter: 2009Q3

REPORT INFORMATION
  Report Type: 
  Country: None (occurrence: None)
  Receive Date: 20090904
  Receipt Date: 20090825
  Transmission Date: 20100115
  Serious: Yes (Other)
  Sender: FDA-Public Use
  Company Number: US-JNJFOC-20080403111

PATIENT
  Sex: Male
  Weight: 60 kg

DRUGS (8)
  1. REMICADE [Suspect]
     Route: 042
  2. REMICADE [Suspect]
     Indication: CROHN'S DISEASE
     Route: 042
  3. ASPIRIN [Concomitant]
     Route: 048
  4. ACETAMINOPHEN [Concomitant]
     Indication: PREMEDICATION
  5. ANTIHISTAMINE [Concomitant]
     Indication: PREMEDICATION
  6. STEROIDS [Concomitant]
  7. METHOTREXATE [Concomitant]
  8. FOLIC ACID [Concomitant]

REACTIONS (1)
  - EPSTEIN-BARR VIRUS INFECTION [None]
